FAERS Safety Report 4451857-X (Version None)
Quarter: 2004Q3

REPORT INFORMATION
  Report Type: 
  Country: None (occurrence: None)
  Receive Date: 20040915
  Receipt Date: 20040915
  Transmission Date: 20050211
  Serious: Yes (Death)
  Sender: FDA-Public Use
  Company Number: None

PATIENT
  Sex: Female
  Weight: 62 kg

DRUGS (21)
  1. CARBOPLATIN [Suspect]
     Dosage: 225 MG/M2
     Dates: start: 20040318
  2. CARBOPLATIN [Suspect]
     Dosage: 225 MG/M2
     Dates: start: 20040407
  3. CARBOPLATIN [Suspect]
     Dosage: 225 MG/M2
     Dates: start: 20040428
  4. TAXOL [Suspect]
     Dosage: 385 MG
     Dates: start: 20040318
  5. TAXOL [Suspect]
     Dosage: 385 MG
     Dates: start: 20040407
  6. TAXOL [Suspect]
     Dosage: 385 MG
     Dates: start: 20040428
  7. INSULIN [Concomitant]
  8. DECADRON [Concomitant]
  9. LABETALOL HCL [Concomitant]
  10. ALBUMIN (HUMAN) [Concomitant]
  11. CLONIDINE HCL [Concomitant]
  12. POTASSIUM PHOSPHATES [Concomitant]
  13. HYDRALAZINE HCL [Concomitant]
  14. MORPHINE [Concomitant]
  15. CEFURAXIME [Concomitant]
  16. HEPARIN [Concomitant]
  17. PEPCID [Concomitant]
  18. CATAPRES [Concomitant]
  19. METOPROL [Concomitant]
  20. KCL TAB [Concomitant]
  21. DDAVP [Concomitant]

REACTIONS (8)
  - BRAIN OEDEMA [None]
  - BRAIN SCAN ABNORMAL [None]
  - BRAIN STEM SYNDROME [None]
  - CEREBRAL HAEMORRHAGE [None]
  - ENCEPHALOPATHY [None]
  - HEMIPARESIS [None]
  - METASTASES TO CENTRAL NERVOUS SYSTEM [None]
  - POST PROCEDURAL COMPLICATION [None]
